FAERS Safety Report 9855375 (Version 1)
Quarter: 2014Q1

REPORT INFORMATION
  Report Type: Spontaneous
  Country: US (occurrence: US)
  Receive Date: 20140130
  Receipt Date: 20140130
  Transmission Date: 20141002
  Serious: Yes (Other)
  Sender: FDA-Public Use
  Company Number: US-JNJFOC-20140114884

PATIENT
  Age: 83 Year
  Sex: Female

DRUGS (2)
  1. XARELTO [Suspect]
     Indication: HEART RATE IRREGULAR
     Route: 048
  2. ATENOLOL [Concomitant]
     Route: 065

REACTIONS (1)
  - Influenza [Not Recovered/Not Resolved]
